FAERS Safety Report 11878036 (Version 1)
Quarter: 2015Q4

REPORT INFORMATION
  Report Type: Spontaneous
  Country: US (occurrence: US)
  Receive Date: 20151230
  Receipt Date: 20151230
  Transmission Date: 20160305
  Serious: Yes (Disabling)
  Sender: FDA-Public Use
  Company Number: US-DRREDDYS-USA/USA/15/0055053

PATIENT
  Age: 55 Year
  Sex: Female

DRUGS (5)
  1. LEVOFLOXACIN TABLETS [Suspect]
     Active Substance: LEVOFLOXACIN
     Route: 065
  2. LEVOFLOXACIN TABLETS [Suspect]
     Active Substance: LEVOFLOXACIN
     Indication: SINUSITIS
     Route: 065
  3. LEVOFLOXACIN TABLETS [Suspect]
     Active Substance: LEVOFLOXACIN
     Indication: URINARY TRACT INFECTION
     Route: 065
  4. LEVOFLOXACIN TABLETS [Suspect]
     Active Substance: LEVOFLOXACIN
     Route: 065
  5. ALENDRONATE [Concomitant]
     Active Substance: ALENDRONATE SODIUM
     Indication: OSTEOPOROSIS
     Route: 065

REACTIONS (14)
  - Muscular weakness [Unknown]
  - Cognitive disorder [Unknown]
  - Sleep disorder [Unknown]
  - Confusional state [Unknown]
  - Tendon pain [Unknown]
  - Mood altered [Unknown]
  - Pain [Unknown]
  - Amnesia [Unknown]
  - Myalgia [Unknown]
  - Sensory disturbance [Unknown]
  - Arthralgia [Unknown]
  - Fatigue [Unknown]
  - Muscle atrophy [Unknown]
  - Neuropathy peripheral [Unknown]
